FAERS Safety Report 8319483-X (Version None)
Quarter: 2012Q2

REPORT INFORMATION
  Report Type: 
  Country: None (occurrence: None)
  Receive Date: 20120427
  Receipt Date: 20120126
  Transmission Date: 20120825
  Serious: Yes (Hospitalization)
  Sender: FDA-Public Use
  Company Number: GB-US-EMD SERONO, INC.-7109337

PATIENT
  Sex: Male

DRUGS (1)
  1. SAIZEN [Suspect]
     Indication: PRODUCT USED FOR UNKNOWN INDICATION
     Route: 058
     Dates: start: 20090122, end: 20120125

REACTIONS (2)
  - CHEST PAIN [None]
  - MUSCLE STRAIN [None]
